FAERS Safety Report 17245153 (Version 1)
Quarter: 2020Q1

REPORT INFORMATION
  Report Type: Spontaneous
  Country: US (occurrence: US)
  Receive Date: 20200108
  Receipt Date: 20200108
  Transmission Date: 20200409
  Serious: No
  Sender: FDA-Public Use
  Company Number: US-STRIDES ARCOLAB LIMITED-2019SP010259

PATIENT
  Sex: Male

DRUGS (2)
  1. OMEGA-3-ACID ETHYL ESTERS. [Suspect]
     Active Substance: OMEGA-3-ACID ETHYL ESTERS
     Indication: CARDIAC DISORDER
     Dosage: 2 MILLIGRAM, BID
     Route: 048
  2. OMEGA-3-ACID ETHYL ESTERS. [Suspect]
     Active Substance: OMEGA-3-ACID ETHYL ESTERS
     Indication: MYOCARDIAL INFARCTION

REACTIONS (6)
  - Product colour issue [Unknown]
  - Product odour abnormal [Unknown]
  - Product adhesion issue [Unknown]
  - Product physical issue [Unknown]
  - Product taste abnormal [Unknown]
  - Product leakage [Unknown]
